FAERS Safety Report 8053831-3 (Version None)
Quarter: 2012Q1

REPORT INFORMATION
  Report Type: 
  Country: None (occurrence: None)
  Receive Date: 20120118
  Receipt Date: 20120112
  Transmission Date: 20120608
  Serious: Yes (Life-Threatening)
  Sender: FDA-Public Use
  Company Number: FR-PFIZER INC-2012008946

PATIENT
  Sex: Female

DRUGS (6)
  1. TEGRETOL [Suspect]
     Dosage: 400 UNK, 3X/DAY
     Route: 048
  2. ZYPREXA [Suspect]
     Dosage: 10MG A DAY
     Route: 048
  3. LEXOMIL [Concomitant]
     Dosage: 3MG A DAY
  4. EFFEXOR XR [Suspect]
     Dosage: 75MG A DAY
     Route: 048
  5. URBANYL [Suspect]
     Dosage: 5 MG, 2X/DAY
     Route: 048
  6. KEPPRA [Suspect]
     Dosage: 500 MG, 2X/DAY
     Route: 048

REACTIONS (3)
  - HYPONATRAEMIA [None]
  - SOMNOLENCE [None]
  - INCORRECT DOSE ADMINISTERED [None]
